FAERS Safety Report 24641957 (Version 1)
Quarter: 2024Q4

REPORT INFORMATION
  Report Type: Report from Study
  Country: GB (occurrence: GB)
  Receive Date: 20241120
  Receipt Date: 20241120
  Transmission Date: 20250114
  Serious: Yes (Other)
  Sender: SANDOZ
  Company Number: GB-002147023-NVSC2019GB040347

PATIENT
  Sex: Female

DRUGS (1)
  1. HYRIMOZ [Suspect]
     Active Substance: ADALIMUMAB-ADAZ
     Indication: Colitis ulcerative
     Dosage: 40 MG, Q2W
     Route: 058

REACTIONS (5)
  - Colitis ulcerative [Unknown]
  - Stress [Unknown]
  - Tonsillitis [Unknown]
  - Anxiety [Unknown]
  - Product dose omission issue [Unknown]
